FAERS Safety Report 6559156-7 (Version None)
Quarter: 2010Q1

REPORT INFORMATION
  Report Type: 
  Country: None (occurrence: None)
  Receive Date: 20100129
  Receipt Date: 20100122
  Transmission Date: 20100710
  Serious: Yes (Other)
  Sender: FDA-Public Use
  Company Number: DE-CVT-100044

PATIENT

DRUGS (5)
  1. RANEXA [Suspect]
     Indication: ANGINA PECTORIS
     Dosage: 375 MG, BID
     Route: 048
     Dates: start: 20091027, end: 20091027
  2. NEBILET [Concomitant]
  3. RAMIPRIL                           /00885601/ [Concomitant]
  4. AMLODIPIN /00972402/ [Concomitant]
  5. SIMVASTATIN [Concomitant]

REACTIONS (1)
  - ANGINA PECTORIS [None]
